FAERS Safety Report 8869164 (Version 1)
Quarter: 2012Q4

REPORT INFORMATION
  Report Type: 
  Country: US (occurrence: US)
  Receive Date: 20121023
  Receipt Date: 20121023
  Transmission Date: 20130627
  Serious: No
  Sender: FDA-Public Use
  Company Number: US-AMGEN-USASP2012053741

PATIENT
  Age: 50 Year
  Sex: Female

DRUGS (1)
  1. ENBREL [Suspect]
     Indication: PRODUCT USED FOR UNKNOWN INDICATION
     Dosage: 50 UNK, UNK
     Route: 058

REACTIONS (5)
  - Feeling hot [Unknown]
  - Erythema [Unknown]
  - Injection site reaction [Unknown]
  - Injection site warmth [Unknown]
  - Injection site erythema [Unknown]
